FAERS Safety Report 12789516 (Version 2)
Quarter: 2016Q4

REPORT INFORMATION
  Report Type: Spontaneous
  Country: DE (occurrence: DE)
  Receive Date: 20160928
  Receipt Date: 20161116
  Transmission Date: 20170207
  Serious: Yes (Other)
  Sender: FDA-Public Use
  Company Number: DE-DRREDDYS-GER/GER/16/0083518

PATIENT
  Age: 67 Year
  Sex: Male

DRUGS (12)
  1. TIMOPHOL 0.5 [Concomitant]
     Indication: PRODUCT USED FOR UNKNOWN INDICATION
  2. METOPROLOL SUCCINATE DURA 23.75MG [Concomitant]
     Indication: PRODUCT USED FOR UNKNOWN INDICATION
  3. DOLOPOSTERINE [Concomitant]
     Indication: PRODUCT USED FOR UNKNOWN INDICATION
  4. SALOFALK 500 [Concomitant]
     Indication: COLITIS
     Dates: end: 201609
  5. CLOPIDOGREL [Concomitant]
     Active Substance: CLOPIDOGREL BISULFATE
     Indication: STENT PLACEMENT
  6. ASS 100 [Concomitant]
     Active Substance: ASPIRIN
     Indication: PRODUCT USED FOR UNKNOWN INDICATION
  7. APROVEL 300 [Concomitant]
     Indication: PRODUCT USED FOR UNKNOWN INDICATION
  8. CANDESARTAN BIOMO16 MG [Concomitant]
     Indication: PRODUCT USED FOR UNKNOWN INDICATION
  9. SALOFALK 500 [Concomitant]
     Dates: start: 201609
  10. CIPROBETA 500 MG FILMTABLETTEN [Suspect]
     Active Substance: CIPROFLOXACIN
     Indication: DIVERTICULITIS
     Route: 048
     Dates: start: 20160916, end: 20160921
  11. METFORMIN [Concomitant]
     Active Substance: METFORMIN HYDROCHLORIDE
     Indication: PRODUCT USED FOR UNKNOWN INDICATION
  12. ATORVASTATIN 40 MG [Concomitant]
     Active Substance: ATORVASTATIN
     Indication: PRODUCT USED FOR UNKNOWN INDICATION

REACTIONS (9)
  - Haematochezia [Recovered/Resolved]
  - Blister [Recovering/Resolving]
  - Lip swelling [Recovered/Resolved]
  - Chapped lips [Unknown]
  - Swollen tear duct [Recovered/Resolved]
  - Lacrimal haemorrhage [Recovering/Resolving]
  - Proctalgia [Recovered/Resolved]
  - Anal pruritus [Unknown]
  - Aphthous ulcer [Recovered/Resolved]

NARRATIVE: CASE EVENT DATE: 20160916
